FAERS Safety Report 4744204-7 (Version None)
Quarter: 2005Q3

REPORT INFORMATION
  Report Type: 
  Country: None (occurrence: None)
  Receive Date: 20050812
  Receipt Date: 20050519
  Transmission Date: 20060218
  Serious: Yes (Other)
  Sender: FDA-Public Use
  Company Number: PHEH2005US05799

PATIENT
  Age: 57 Year
  Sex: Male

DRUGS (1)
  1. ZOMETA [Suspect]
     Indication: METASTASES TO BONE
     Dosage: 4 MG EVERY 4 WEEKS
     Dates: start: 20040901, end: 20050401

REACTIONS (13)
  - ASEPTIC NECROSIS BONE [None]
  - BONE DISORDER [None]
  - ERYTHEMA [None]
  - FISTULA [None]
  - IMPAIRED HEALING [None]
  - JAW DISORDER [None]
  - ORAL SOFT TISSUE DISORDER [None]
  - PAIN [None]
  - PURULENCE [None]
  - SOFT TISSUE INFECTION [None]
  - SWELLING [None]
  - TOOTH EXTRACTION [None]
  - WOUND DEHISCENCE [None]
